FAERS Safety Report 15203524 (Version 1)
Quarter: 2018Q3

REPORT INFORMATION
  Report Type: Spontaneous
  Country: BG (occurrence: BG)
  Receive Date: 20180726
  Receipt Date: 20180726
  Transmission Date: 20181010
  Serious: Yes (Life-Threatening, Hospitalization)
  Sender: FDA-Public Use
  Company Number: BG-TEVA-2018-BG-928830

PATIENT
  Age: 47 Year
  Sex: Male

DRUGS (3)
  1. CLOPIDOGREL [Suspect]
     Active Substance: CLOPIDOGREL BISULFATE
     Indication: MYOCARDIAL INFARCTION
     Dates: start: 2015, end: 2018
  2. ASPIRIN PROTECT [Concomitant]
     Active Substance: ASPIRIN
  3. TRITACE [Concomitant]
     Active Substance: RAMIPRIL

REACTIONS (2)
  - Rectal haemorrhage [Recovering/Resolving]
  - Urethral haemorrhage [Recovering/Resolving]

NARRATIVE: CASE EVENT DATE: 20180605
